FAERS Safety Report 18278014 (Version 1)
Quarter: 2020Q3

REPORT INFORMATION
  Report Type: Other
  Country: IT (occurrence: IT)
  Receive Date: 20200917
  Receipt Date: 20200917
  Transmission Date: 20201103
  Serious: Yes (Other)
  Sender: FDA-Public Use
  Company Number: IT-ROCHE-2676769

PATIENT

DRUGS (1)
  1. VEMURAFENIB. [Suspect]
     Active Substance: VEMURAFENIB
     Indication: MALIGNANT MELANOMA
     Route: 065

REACTIONS (22)
  - Erythema nodosum [Recovered/Resolved]
  - Melanocytic naevus [Unknown]
  - Rash [Unknown]
  - Alopecia [Unknown]
  - Skin papilloma [Unknown]
  - Nipple enlargement [Unknown]
  - Photosensitivity reaction [Unknown]
  - Keratoacanthoma [Unknown]
  - Psoriasis [Unknown]
  - Vitiligo [Unknown]
  - Erythema [Unknown]
  - Palmar-plantar erythrodysaesthesia syndrome [Unknown]
  - Seborrhoeic dermatitis [Unknown]
  - Stevens-Johnson syndrome [Unknown]
  - Squamous cell carcinoma [Unknown]
  - Vasculitis [Recovered/Resolved]
  - Basal cell carcinoma [Unknown]
  - Malignant melanoma [Unknown]
  - Pruritus [Unknown]
  - Cyst [Unknown]
  - Xerosis [Unknown]
  - Hyperkeratosis [Unknown]
